FAERS Safety Report 6907684-4 (Version None)
Quarter: 2010Q3

REPORT INFORMATION
  Report Type: 
  Country: None (occurrence: None)
  Receive Date: 20100802
  Receipt Date: 20100601
  Transmission Date: 20110219
  Serious: Yes (Other)
  Sender: FDA-Public Use
  Company Number: 236485USA

PATIENT
  Age: 40 Year
  Sex: Female

DRUGS (1)
  1. LOSEASONIQUE [Suspect]
     Dates: start: 20090201

REACTIONS (4)
  - ABDOMINAL PAIN UPPER [None]
  - DRUG INEFFECTIVE [None]
  - PREGNANCY ON ORAL CONTRACEPTIVE [None]
  - UTERINE HAEMORRHAGE [None]
